FAERS Safety Report 16146350 (Version 5)
Quarter: 2019Q2

REPORT INFORMATION
  Report Type: Spontaneous
  Country: US (occurrence: US)
  Receive Date: 20190402
  Receipt Date: 20190624
  Transmission Date: 20190711
  Serious: Yes (Other)
  Sender: FDA-Public Use
  Company Number: US-PFIZER INC-2019138584

PATIENT
  Age: 52 Year
  Sex: Female
  Weight: 106 kg

DRUGS (1)
  1. XALKORI [Suspect]
     Active Substance: CRIZOTINIB
     Indication: LUNG CANCER METASTATIC
     Dosage: 250 MG, 2X/DAY
     Route: 048
     Dates: start: 20190315

REACTIONS (6)
  - Pain in extremity [Unknown]
  - Peripheral swelling [Unknown]
  - Diarrhoea [Unknown]
  - Fatigue [Unknown]
  - Blood electrolytes decreased [Unknown]
  - Thrombosis [Unknown]

NARRATIVE: CASE EVENT DATE: 2019
